FAERS Safety Report 9715812 (Version 2)
Quarter: 2014Q1

REPORT INFORMATION
  Report Type: Spontaneous
  Country: US (occurrence: US)
  Receive Date: 20131127
  Receipt Date: 20140102
  Transmission Date: 20141002
  Serious: Yes (Death)
  Sender: FDA-Public Use
  Company Number: US-CELGENEUS-163-21660-13114776

PATIENT
  Age: 61 Year
  Sex: Female

DRUGS (1)
  1. ABRAXANE [Suspect]
     Indication: PRODUCT USED FOR UNKNOWN INDICATION
     Route: 041
     Dates: start: 20131021, end: 20131111

REACTIONS (2)
  - Pancreatic carcinoma [Fatal]
  - Respiratory arrest [Fatal]
